FAERS Safety Report 10070961 (Version 1)
Quarter: 2014Q2

REPORT INFORMATION
  Report Type: Spontaneous
  Country: US (occurrence: US)
  Receive Date: 20140410
  Receipt Date: 20140410
  Transmission Date: 20141212
  Serious: Yes (Other)
  Sender: FDA-Public Use
  Company Number: US-GLAXOSMITHKLINE-A1068250A

PATIENT
  Sex: 0

DRUGS (2)
  1. MEKINIST [Suspect]
  2. TAFINLAR [Suspect]

REACTIONS (2)
  - Panniculitis [Unknown]
  - Vasculitis [Unknown]
